FAERS Safety Report 10526160 (Version 1)
Quarter: 2014Q4

REPORT INFORMATION
  Report Type: Spontaneous
  Country: US (occurrence: US)
  Receive Date: 20141017
  Receipt Date: 20141017
  Transmission Date: 20150528
  Serious: Yes (Hospitalization, Other)
  Sender: FDA-Public Use
  Company Number: ALCN2014US005645

PATIENT
  Age: 59 Year
  Sex: Male

DRUGS (4)
  1. CHOLECALCIFEROL [Concomitant]
     Active Substance: CHOLECALCIFEROL
     Dosage: 1 DF, UNK
     Route: 048
  2. OMEGA 3 [Concomitant]
     Active Substance: OMEGA-3 FATTY ACIDS
     Dosage: 1 DF, UNK
     Route: 048
  3. TIMOLOL [Suspect]
     Active Substance: TIMOLOL
     Indication: OFF LABEL USE
  4. TIMOLOL [Suspect]
     Active Substance: TIMOLOL
     Indication: PROPHYLAXIS
     Dosage: 3 GTT, TID
     Route: 045

REACTIONS (4)
  - Off label use [Recovered/Resolved]
  - Bundle branch block right [None]
  - Bradycardia [Recovered/Resolved]
  - Dizziness [Recovered/Resolved]
